FAERS Safety Report 10099034 (Version 1)
Quarter: 2014Q2

REPORT INFORMATION
  Report Type: Spontaneous
  Country: US (occurrence: US)
  Receive Date: 20140423
  Receipt Date: 20140423
  Transmission Date: 20141212
  Serious: No
  Sender: FDA-Public Use
  Company Number: US-GILEAD-2012-0066370

PATIENT
  Age: 82 Year
  Sex: Female

DRUGS (9)
  1. LETAIRIS [Suspect]
     Indication: PULMONARY HYPERTENSION
     Dosage: 5 MG, QD
     Route: 048
     Dates: start: 20120928, end: 20121204
  2. PRILOSEC                           /00661201/ [Concomitant]
  3. METHOCARBAMOL [Concomitant]
  4. LEVOTHYROXINE [Concomitant]
  5. KLOR-CON [Concomitant]
  6. SOTALOL [Concomitant]
  7. QUININE SULFATE [Concomitant]
  8. PRADAXA [Concomitant]
  9. REVATIO [Concomitant]

REACTIONS (2)
  - Oedema [Unknown]
  - Drug ineffective [Unknown]
